FAERS Safety Report 17018677 (Version 1)
Quarter: 2019Q4

REPORT INFORMATION
  Report Type: Report from Study
  Country: US (occurrence: US)
  Receive Date: 20191111
  Receipt Date: 20191111
  Transmission Date: 20200122
  Serious: Yes (Hospitalization)
  Sender: FDA-Public Use
  Company Number: PHHO2004US020883

PATIENT
  Age: 75 Year
  Sex: Male
  Weight: 86 kg

DRUGS (10)
  1. ANGIOMAX [Suspect]
     Active Substance: BIVALIRUDIN
     Dosage: 2.5 MG/KG/HR
     Route: 042
     Dates: start: 20041020, end: 20041020
  2. CEFAZOLIN [Suspect]
     Active Substance: CEFAZOLIN
     Indication: PRODUCT USED FOR UNKNOWN INDICATION
     Dosage: 1 G, UNK
     Route: 042
     Dates: start: 20041020, end: 20041024
  3. LOPRESSOR [Concomitant]
     Active Substance: METOPROLOL TARTRATE
     Indication: BLOOD PRESSURE MEASUREMENT
     Dosage: 12.5 MG, UNK
     Route: 048
     Dates: start: 20041022
  4. FUROSEMIDE. [Concomitant]
     Active Substance: FUROSEMIDE
     Indication: DIURETIC THERAPY
     Dosage: 20 MG, UNK
     Route: 048
     Dates: start: 20041021, end: 20041028
  5. ARGATROBAN. [Concomitant]
     Active Substance: ARGATROBAN
     Indication: ANTICOAGULANT THERAPY
     Dosage: .7 UG/KG, MIN
     Route: 042
     Dates: start: 20041025, end: 20041028
  6. ASA [Concomitant]
     Active Substance: ASPIRIN
     Indication: ANTICOAGULANT THERAPY
     Dosage: 81 MG, UNK
     Route: 048
     Dates: start: 20041021
  7. ANGIOMAX [Suspect]
     Active Substance: BIVALIRUDIN
     Indication: PRODUCT USED FOR UNKNOWN INDICATION
     Dosage: 77 MG, BOLUS
     Route: 040
     Dates: start: 20041020, end: 20041020
  8. ESOMEPRAZOLE. [Concomitant]
     Active Substance: ESOMEPRAZOLE MAGNESIUM
     Indication: GASTROOESOPHAGEAL REFLUX DISEASE
     Dosage: 20 MG, UNK
     Route: 048
     Dates: start: 20041021
  9. SUCRALFATE. [Concomitant]
     Active Substance: SUCRALFATE
     Indication: PROPHYLAXIS AGAINST GASTROINTESTINAL ULCER
     Dosage: 1 G, UNK
     Route: 048
     Dates: start: 20041020, end: 20041021
  10. WARFARIN [Concomitant]
     Active Substance: WARFARIN
     Indication: ANTICOAGULANT THERAPY
     Dosage: 3 MG, UNK
     Route: 048
     Dates: start: 20041024

REACTIONS (1)
  - Clostridium difficile colitis [Recovered/Resolved]

NARRATIVE: CASE EVENT DATE: 20041028
